FAERS Safety Report 5317951-6 (Version None)
Quarter: 2007Q2

REPORT INFORMATION
  Report Type: 
  Country: None (occurrence: None)
  Receive Date: 20070504
  Receipt Date: 20070504
  Transmission Date: 20071010
  Serious: Yes (Hospitalization)
  Sender: FDA-Public Use
  Company Number: None

PATIENT
  Sex: Male
  Weight: 107.9561 kg

DRUGS (2)
  1. ENALAPRIL MALEATE [Suspect]
     Dosage: 2.5 MG DAILY PO
     Route: 048
     Dates: start: 20051230, end: 20070314
  2. FUROSEMIDE [Suspect]
     Dosage: 40 MG DAILY PO
     Route: 048
     Dates: start: 20041210, end: 20070314

REACTIONS (1)
  - HYPOTENSION [None]
